FAERS Safety Report 8847459 (Version 1)
Quarter: 2012Q4

REPORT INFORMATION
  Report Type: 
  Country: US (occurrence: US)
  Receive Date: 20121018
  Receipt Date: 20121018
  Transmission Date: 20130627
  Serious: No
  Sender: FDA-Public Use
  Company Number: US-TARO-2011P1008208

PATIENT
  Age: 19 Year
  Sex: Male
  Weight: 58.97 kg

DRUGS (3)
  1. DESONIDE [Suspect]
     Indication: ECZEMA
     Route: 061
     Dates: start: 20110926, end: 20110926
  2. HYDROCORTISONE VALERATE CREAM 0.2% [Suspect]
     Indication: ECZEMA
     Route: 061
     Dates: start: 201108
  3. HYDROCORTISONE VALERATE CREAM 0.2% [Suspect]
     Indication: ECZEMA
     Route: 061
     Dates: start: 20110813, end: 20110816

REACTIONS (6)
  - Skin hypopigmentation [Not Recovered/Not Resolved]
  - Pallor [Not Recovered/Not Resolved]
  - Drug ineffective [Not Recovered/Not Resolved]
  - Rhinorrhoea [Recovering/Resolving]
  - Skin disorder [Not Recovered/Not Resolved]
  - Application site pruritus [Recovered/Resolved]
